FAERS Safety Report 9357347 (Version 2)
Quarter: 2013Q3

REPORT INFORMATION
  Report Type: Spontaneous
  Country: US (occurrence: None)
  Receive Date: 20130617
  Receipt Date: 20130726
  Transmission Date: 20140515
  Serious: Yes (Hospitalization)
  Sender: FDA-Public Use
  Company Number: 2013-2299

PATIENT
  Age: 44 Year
  Sex: Female

DRUGS (3)
  1. SOMATULINE DEPOT [Suspect]
     Indication: CARCINOID SYNDROME
     Dosage: DOSAGE TAKEN ONCE EVERY 28 DAYS.
     Route: 058
     Dates: start: 20130507
  2. PROZAC (FLUOXETINE HYDROCHLORIDE) [Concomitant]
  3. BLOOD THINNER (ALL OTHER THERAPEUTIC PRODUCTS) [Concomitant]

REACTIONS (5)
  - Haemoglobin decreased [None]
  - International normalised ratio increased [None]
  - Presyncope [None]
  - Duodenal neoplasm [None]
  - Tumour haemorrhage [None]
